FAERS Safety Report 7594069-3 (Version None)
Quarter: 2011Q3

REPORT INFORMATION
  Report Type: 
  Country: None (occurrence: None)
  Receive Date: 20110706
  Receipt Date: 20110627
  Transmission Date: 20111222
  Serious: Yes (Hospitalization)
  Sender: FDA-Public Use
  Company Number: BR-ASTRAZENECA-2011SE39004

PATIENT
  Age: 66 Year
  Sex: Female
  Weight: 66 kg

DRUGS (6)
  1. ATACAND [Suspect]
     Indication: HYPERTENSION
     Route: 048
     Dates: start: 20100101, end: 20101101
  2. DICLOFENAC SODIUM [Suspect]
     Indication: INFLUENZA
     Route: 048
     Dates: start: 20101201
  3. METOPROLOL SUCCINATE [Suspect]
     Indication: HYPERTENSION
     Route: 048
     Dates: start: 20080101, end: 20100101
  4. ATACAND [Suspect]
     Route: 048
     Dates: start: 20101101, end: 20110301
  5. DICLOFENAC SODIUM [Suspect]
     Indication: OROPHARYNGEAL PAIN
     Route: 048
     Dates: start: 20101201
  6. ATACAND HCT [Suspect]
     Indication: HYPERTENSION
     Dosage: 16/12.5 MG DAILY
     Route: 048
     Dates: start: 20101101, end: 20101101

REACTIONS (10)
  - OESOPHAGEAL LESION EXCISION [None]
  - SKIN DISCOLOURATION [None]
  - BLOOD PRESSURE INADEQUATELY CONTROLLED [None]
  - OROPHARYNGEAL PAIN [None]
  - INSOMNIA [None]
  - OESOPHAGEAL MASS [None]
  - INFLUENZA [None]
  - DRUG INEFFECTIVE [None]
  - FEELING HOT [None]
  - PHARYNGEAL INFLAMMATION [None]
